FAERS Safety Report 14410995 (Version 2)
Quarter: 2018Q1

REPORT INFORMATION
  Report Type: Spontaneous
  Country: US (occurrence: US)
  Receive Date: 20180119
  Receipt Date: 20180217
  Transmission Date: 20180509
  Serious: Yes (Other)
  Sender: FDA-Public Use
  Company Number: US-JNJFOC-20171218663

PATIENT
  Age: 33 Year
  Sex: Female

DRUGS (5)
  1. TOPAMAX [Suspect]
     Active Substance: TOPIRAMATE
     Indication: MIGRAINE PROPHYLAXIS
     Route: 048
     Dates: start: 2017, end: 20171204
  2. NUVARING [Concomitant]
     Active Substance: ETHINYL ESTRADIOL\ETONOGESTREL
     Indication: CONTRACEPTION
     Route: 065
  3. TOPAMAX [Suspect]
     Active Substance: TOPIRAMATE
     Indication: MIGRAINE PROPHYLAXIS
     Route: 048
     Dates: start: 201709
  4. LEVOTHYROXINE. [Suspect]
     Active Substance: LEVOTHYROXINE
     Indication: HYPOTHYROIDISM
     Route: 065
     Dates: start: 2017
  5. SINGULAIR [Concomitant]
     Active Substance: MONTELUKAST SODIUM
     Indication: PRODUCT USED FOR UNKNOWN INDICATION
     Route: 065

REACTIONS (18)
  - Hyperhidrosis [Recovered/Resolved]
  - Fatigue [Recovered/Resolved]
  - Visual impairment [Recovered/Resolved]
  - Migraine [Recovered/Resolved]
  - Eye irritation [Recovered/Resolved]
  - Anaemia [Recovered/Resolved]
  - Hypersensitivity [Recovered/Resolved]
  - Weight decreased [Recovered/Resolved]
  - Insomnia [Recovered/Resolved]
  - Flatulence [Recovered/Resolved]
  - Pyrexia [Recovered/Resolved]
  - Tremor [Recovered/Resolved]
  - Muscle twitching [Recovered/Resolved]
  - Rash generalised [Recovered/Resolved]
  - Malaise [Recovered/Resolved]
  - Vision blurred [Recovered/Resolved]
  - Eye haemorrhage [Recovered/Resolved]
  - Feeling abnormal [Recovered/Resolved]

NARRATIVE: CASE EVENT DATE: 2017
